FAERS Safety Report 8695086 (Version 2)
Quarter: 2013Q4

REPORT INFORMATION
  Report Type: Spontaneous
  Country: US (occurrence: US)
  Receive Date: 20120731
  Receipt Date: 20131031
  Transmission Date: 20140711
  Serious: Yes (Other)
  Sender: FDA-Public Use
  Company Number: US-009507513-1207USA010179

PATIENT
  Age: 35 Year
  Sex: Female

DRUGS (3)
  1. JANUMET [Suspect]
     Dosage: 2 DF, QD
  2. LANTUS [Suspect]
  3. ASPIRIN [Suspect]

REACTIONS (2)
  - Abortion spontaneous [Unknown]
  - Maternal exposure during pregnancy [Recovered/Resolved]
